FAERS Safety Report 5940265-8 (Version None)
Quarter: 2008Q4

REPORT INFORMATION
  Report Type: 
  Country: None (occurrence: None)
  Receive Date: 20081104
  Receipt Date: 20081023
  Transmission Date: 20090506
  Serious: Yes (Hospitalization, Disabling, Other)
  Sender: FDA-Public Use
  Company Number: JP-BAYER-200811483BYL

PATIENT
  Age: 79 Year
  Sex: Male
  Weight: 50 kg

DRUGS (24)
  1. NEXAVAR [Suspect]
     Indication: RENAL CELL CARCINOMA STAGE IV
     Dosage: TOTAL DAILY DOSE: 800 MG  UNIT DOSE: 200 MG
     Route: 048
     Dates: start: 20080529, end: 20080611
  2. NEXAVAR [Suspect]
     Dosage: AS USED: 400 MG  UNIT DOSE: 200 MG
     Route: 048
     Dates: start: 20080708, end: 20080715
  3. NEXAVAR [Suspect]
     Dosage: AS USED: 400 MG  UNIT DOSE: 200 MG
     Route: 048
     Dates: start: 20080726, end: 20080811
  4. NEXAVAR [Suspect]
     Dosage: AS USED: 400 MG  UNIT DOSE: 200 MG
     Route: 048
     Dates: start: 20080814, end: 20080815
  5. TRIPAREN NO.1 [Concomitant]
     Indication: NUTRITIONAL SUPPORT
     Route: 042
     Dates: start: 20080422
  6. AMINOLEBAN [Concomitant]
     Indication: NUTRITIONAL SUPPORT
     Route: 042
     Dates: start: 20080422, end: 20080602
  7. AMINOLEBAN [Concomitant]
     Route: 042
     Dates: start: 20080603
  8. OTSUKA MV [Concomitant]
     Indication: NUTRITIONAL SUPPORT
     Route: 042
     Dates: start: 20080422
  9. MEDLENIK [Concomitant]
     Indication: NUTRITIONAL SUPPORT
     Route: 042
     Dates: start: 20080422
  10. KNMG-NO.3 [Concomitant]
     Indication: ELECTROLYTE SUBSTITUTION THERAPY
     Route: 042
     Dates: start: 20080527, end: 20080602
  11. 10% SODIUM CHLORIDE [Concomitant]
     Indication: ELECTROLYTE SUBSTITUTION THERAPY
     Route: 042
     Dates: start: 20080608, end: 20080621
  12. 10% SODIUM CHLORIDE [Concomitant]
     Route: 042
     Dates: start: 20080622, end: 20080707
  13. 10% SODIUM CHLORIDE [Concomitant]
     Route: 042
     Dates: start: 20080605, end: 20080607
  14. 10% SODIUM CHLORIDE [Concomitant]
     Route: 042
     Dates: start: 20080527, end: 20080604
  15. NEOPHAGEN C [Concomitant]
     Route: 042
     Dates: start: 20080301
  16. HEPARIN NA LOCK [Concomitant]
     Route: 042
     Dates: start: 20080524, end: 20080617
  17. GLUCOSE [Concomitant]
     Indication: NUTRITIONAL SUPPORT
     Route: 042
     Dates: start: 20080603
  18. FLOXAID [Concomitant]
     Indication: ELECTROLYTE SUBSTITUTION THERAPY
     Route: 042
     Dates: start: 20080606, end: 20080707
  19. INTRALIPID 10% [Concomitant]
     Indication: NUTRITIONAL SUPPORT
     Route: 042
     Dates: start: 20080511
  20. BLOPRESS [Concomitant]
     Route: 048
     Dates: start: 20080229
  21. ANPEC [Concomitant]
     Indication: ANALGESIA
     Route: 054
     Dates: start: 20080512, end: 20080612
  22. ANPEC [Concomitant]
     Route: 054
     Dates: start: 20080613
  23. INTERFERON ALFA [Concomitant]
     Indication: RENAL CELL CARCINOMA STAGE IV
  24. VOLTAREN [Concomitant]
     Route: 054

REACTIONS (13)
  - ALOPECIA [None]
  - ANAEMIA [None]
  - DIARRHOEA [None]
  - GASTROINTESTINAL HAEMORRHAGE [None]
  - ILEUS PARALYTIC [None]
  - LIPASE INCREASED [None]
  - PLATELET COUNT DECREASED [None]
  - PLEURAL EFFUSION [None]
  - PNEUMONIA ASPIRATION [None]
  - RASH [None]
  - RENAL IMPAIRMENT [None]
  - RETROPERITONEAL ABSCESS [None]
  - SEPSIS [None]
